FAERS Safety Report 20490600 (Version 1)
Quarter: 2022Q1

REPORT INFORMATION
  Report Type: Spontaneous
  Country: US (occurrence: US)
  Receive Date: 20220218
  Receipt Date: 20220218
  Transmission Date: 20220423
  Serious: Yes (Hospitalization, Other)
  Sender: FDA-Public Use
  Company Number: US-009507513-2202USA004608

PATIENT
  Sex: Female
  Weight: 131.97 kg

DRUGS (2)
  1. KEYTRUDA [Suspect]
     Active Substance: PEMBROLIZUMAB
     Dosage: UNK
  2. LENVATINIB MESYLATE [Suspect]
     Active Substance: LENVATINIB MESYLATE
     Indication: Endometrial cancer
     Dosage: 14 MILLIGRAM, ONCE DAILY
     Route: 048
     Dates: start: 20210910

REACTIONS (14)
  - Abdominal pain [Unknown]
  - Malignant neoplasm progression [Unknown]
  - Foreign body in throat [Unknown]
  - Nausea [Unknown]
  - Eating disorder [Unknown]
  - Weight decreased [Unknown]
  - Vomiting [Recovering/Resolving]
  - Intra-abdominal fluid collection [Unknown]
  - Drug ineffective [Unknown]
  - Abdominal discomfort [Unknown]
  - Dysgeusia [Unknown]
  - Parosmia [Unknown]
  - Post procedural complication [Unknown]
  - Impaired healing [Unknown]

NARRATIVE: CASE EVENT DATE: 20211201
